FAERS Safety Report 4367576-4 (Version None)
Quarter: 2004Q2

REPORT INFORMATION
  Report Type: 
  Country: None (occurrence: None)
  Receive Date: 20040601
  Receipt Date: 20020516
  Transmission Date: 20050107
  Serious: Yes (Hospitalization, Other)
  Sender: FDA-Public Use
  Company Number: US-MERCK-0205USA02079

PATIENT
  Age: 80 Year
  Sex: Female
  Weight: 55 kg

DRUGS (13)
  1. [THERAPY UNSPECIFIED] [Concomitant]
     Indication: HYPERSENSITIVITY
     Route: 065
  2. VICODIN [Concomitant]
     Route: 065
     Dates: start: 20010530
  3. FOSAMAX [Concomitant]
     Route: 048
     Dates: start: 20011009, end: 20020901
  4. NORVASC [Concomitant]
     Route: 065
  5. BAYCOL [Concomitant]
     Route: 065
     Dates: start: 20010718
  6. BENADRYL [Concomitant]
     Indication: HYPERSENSITIVITY
     Route: 065
  7. FOLIC ACID [Concomitant]
     Route: 065
     Dates: start: 20010626
  8. PRINIVIL [Concomitant]
     Route: 048
  9. PRAVACHOL [Concomitant]
     Route: 065
     Dates: end: 20010621
  10. EVISTA [Concomitant]
     Route: 065
  11. VIOXX [Suspect]
     Indication: CARDIAC DISORDER
     Route: 048
     Dates: start: 20001030, end: 20010801
  12. VIOXX [Suspect]
     Route: 048
     Dates: start: 20010802, end: 20011101
  13. BETIMOL [Concomitant]
     Indication: EYE OPERATION
     Route: 047
     Dates: start: 20000610

REACTIONS (17)
  - ACUTE MYOCARDIAL INFARCTION [None]
  - ANAEMIA [None]
  - ANGINA PECTORIS [None]
  - ARTERIAL DISORDER [None]
  - BACK DISORDER [None]
  - BLOOD GLUCOSE FLUCTUATION [None]
  - CARDIAC FAILURE CONGESTIVE [None]
  - CHEST PAIN [None]
  - CORONARY ARTERY DISEASE [None]
  - DIABETES MELLITUS NON-INSULIN-DEPENDENT [None]
  - GLAUCOMA [None]
  - HAEMATOMA [None]
  - HYPERTENSION [None]
  - MYOCARDIAL INFARCTION [None]
  - OSTEOPOROSIS [None]
  - SPONDYLOLISTHESIS ACQUIRED [None]
  - STRESS SYMPTOMS [None]
